FAERS Safety Report 19764096 (Version 3)
Quarter: 2021Q4

REPORT INFORMATION
  Report Type: Spontaneous
  Country: US (occurrence: US)
  Receive Date: 20210830
  Receipt Date: 20211112
  Transmission Date: 20220303
  Serious: No
  Sender: FDA-Public Use
  Company Number: US-TAKEDA-2021TUS053305

PATIENT
  Age: 18 Year
  Sex: Male
  Weight: 70 kg

DRUGS (29)
  1. GATTEX [Suspect]
     Active Substance: TEDUGLUTIDE\WATER
     Indication: Short-bowel syndrome
     Dosage: 3.25 MILLIGRAM
     Route: 065
     Dates: start: 20210723
  2. GATTEX [Suspect]
     Active Substance: TEDUGLUTIDE\WATER
     Indication: Short-bowel syndrome
     Dosage: 3.25 MILLIGRAM
     Route: 065
     Dates: start: 20210723
  3. GATTEX [Suspect]
     Active Substance: TEDUGLUTIDE\WATER
     Indication: Short-bowel syndrome
     Dosage: 3.25 MILLIGRAM
     Route: 065
     Dates: start: 20210723
  4. GATTEX [Suspect]
     Active Substance: TEDUGLUTIDE\WATER
     Indication: Short-bowel syndrome
     Dosage: 3.25 MILLIGRAM
     Route: 065
     Dates: start: 20210723
  5. GATTEX [Suspect]
     Active Substance: TEDUGLUTIDE\WATER
     Dosage: 3.25 MILLIGRAM, QD
     Route: 050
     Dates: start: 20210204, end: 20210819
  6. GATTEX [Suspect]
     Active Substance: TEDUGLUTIDE\WATER
     Dosage: 3.25 MILLIGRAM, QD
     Route: 050
     Dates: start: 20210204, end: 20210819
  7. GATTEX [Suspect]
     Active Substance: TEDUGLUTIDE\WATER
     Dosage: 3.25 MILLIGRAM, QD
     Route: 050
     Dates: start: 20210204, end: 20210819
  8. GATTEX [Suspect]
     Active Substance: TEDUGLUTIDE\WATER
     Dosage: 3.25 MILLIGRAM, QD
     Route: 050
     Dates: start: 20210204, end: 20210819
  9. GATTEX [Suspect]
     Active Substance: TEDUGLUTIDE\WATER
     Dosage: 1.625 MILLIGRAM, QD
     Route: 050
  10. GATTEX [Suspect]
     Active Substance: TEDUGLUTIDE\WATER
     Dosage: 1.625 MILLIGRAM, QD
     Route: 050
  11. GATTEX [Suspect]
     Active Substance: TEDUGLUTIDE\WATER
     Dosage: 1.625 MILLIGRAM, QD
     Route: 050
  12. GATTEX [Suspect]
     Active Substance: TEDUGLUTIDE\WATER
     Dosage: 1.625 MILLIGRAM, QD
     Route: 050
  13. ATIVAN [Concomitant]
     Active Substance: LORAZEPAM
     Dosage: 1 MILLILITER, QD
     Route: 050
  14. CALCITRIOL [Concomitant]
     Active Substance: CALCITRIOL
     Dosage: 3 MILLILITER, 3/WEEK
     Route: 042
  15. DULERA [Concomitant]
     Active Substance: FORMOTEROL FUMARATE DIHYDRATE\MOMETASONE FUROATE
     Dosage: UNK UNK, BID
     Route: 055
  16. FOSPHENYTOIN SODIUM [Concomitant]
     Active Substance: FOSPHENYTOIN SODIUM
     Dosage: 1.5 MILLILITER, TID
     Route: 050
  17. KEPPRA [Concomitant]
     Active Substance: LEVETIRACETAM
     Dosage: 1250 MILLIGRAM, TID
     Route: 042
  18. PHENOBARBITAL [Concomitant]
     Active Substance: PHENOBARBITAL
     Dosage: 0.8 MILLILITER, BID
     Route: 050
  19. PRIVIGEN [Concomitant]
     Active Substance: HUMAN IMMUNOGLOBULIN G
     Route: 042
  20. PROMETHAZINE [Concomitant]
     Active Substance: PROMETHAZINE HYDROCHLORIDE
     Dosage: UNK UNK, QID
     Route: 050
  21. TYLENOL [Concomitant]
     Active Substance: ACETAMINOPHEN
     Dosage: UNK
     Route: 048
  22. TYLENOL [Concomitant]
     Active Substance: ACETAMINOPHEN
     Dosage: UNK
     Route: 042
  23. TPN [Concomitant]
     Active Substance: AMINO ACIDS\DEXTROSE\ELECTROLYTES NOS\SOYBEAN OIL
     Dosage: UNK UNK, QD
  24. VALTOCO [Concomitant]
     Active Substance: DIAZEPAM
     Dosage: 15 MILLIGRAM
     Route: 045
  25. VERSED [Concomitant]
     Active Substance: MIDAZOLAM HYDROCHLORIDE
     Dosage: 10 MILLIGRAM
     Route: 045
  26. VENOFER [Concomitant]
     Active Substance: IRON SUCROSE
     Dosage: UNK UNK, Q2WEEKS
     Route: 042
  27. VIMPAT [Concomitant]
     Active Substance: LACOSAMIDE
     Dosage: UNK UNK, TID
     Route: 042
  28. VITAMIN D NOS [Concomitant]
     Active Substance: VITAMIN D NOS
     Dosage: 50000 INTERNATIONAL UNIT, 2/WEEK
     Route: 048
  29. XOPENEX HFA [Concomitant]
     Active Substance: LEVALBUTEROL TARTRATE
     Dosage: UNK UNK, QID
     Route: 055

REACTIONS (6)
  - Aggression [Recovered/Resolved]
  - Pain [Recovered/Resolved]
  - Discomfort [Recovered/Resolved]
  - Retching [Unknown]
  - Therapy interrupted [Unknown]
  - Abnormal behaviour [Unknown]

NARRATIVE: CASE EVENT DATE: 20210718
